FAERS Safety Report 17899230 (Version 1)
Quarter: 2020Q2

REPORT INFORMATION
  Report Type: Spontaneous
  Country: US (occurrence: US)
  Receive Date: 20200616
  Receipt Date: 20200616
  Transmission Date: 20200714
  Serious: Yes (Hospitalization)
  Sender: FDA-Public Use
  Company Number: US-HIKMA PHARMACEUTICALS USA INC.-US-H14001-20-02816

PATIENT
  Age: 71 Year
  Sex: Male

DRUGS (4)
  1. BUSULFAN. [Concomitant]
     Active Substance: BUSULFAN
     Indication: CHEMOTHERAPY
     Route: 065
  2. CYTARABINE. [Concomitant]
     Active Substance: CYTARABINE
     Indication: CHEMOTHERAPY
     Route: 065
  3. THIOTEPA. [Suspect]
     Active Substance: THIOTEPA
     Indication: CHEMOTHERAPY
     Route: 065
  4. CYCLOPHOSPHAMIDE. [Concomitant]
     Active Substance: CYCLOPHOSPHAMIDE
     Indication: CHEMOTHERAPY
     Route: 065

REACTIONS (3)
  - Mucosal inflammation [Recovered/Resolved]
  - Intertrigo [Recovered/Resolved]
  - Toxic erythema of chemotherapy [Recovered/Resolved]
